FAERS Safety Report 22691615 (Version 2)
Quarter: 2023Q4

REPORT INFORMATION
  Report Type: Spontaneous
  Country: US (occurrence: US)
  Receive Date: 20230711
  Receipt Date: 20231118
  Transmission Date: 20240110
  Serious: No
  Sender: FDA-Public Use
  Company Number: US-TEVA-2023-US-2902338

PATIENT
  Age: 55 Year
  Sex: Female

DRUGS (1)
  1. TAXOTERE [Suspect]
     Active Substance: DOCETAXEL
     Indication: Breast cancer
     Dosage: 3.5714 MG/M2 DAILY; NUMBER OF CYCLES:02, DOSE 75 MG/M2=154
     Route: 065
     Dates: start: 20180612, end: 20180713

REACTIONS (9)
  - Erythema [Unknown]
  - Skin exfoliation [Unknown]
  - Blister [Unknown]
  - Mucosal inflammation [Unknown]
  - Scleral disorder [Unknown]
  - Reduced facial expression [Unknown]
  - Dysphagia [Unknown]
  - Lacrimation increased [Unknown]
  - Rhinorrhoea [Unknown]

NARRATIVE: CASE EVENT DATE: 20180601
